FAERS Safety Report 5372257-4 (Version None)
Quarter: 2007Q2

REPORT INFORMATION
  Report Type: 
  Country: None (occurrence: None)
  Receive Date: 20070620
  Receipt Date: 20070301
  Transmission Date: 20071010
  Serious: No
  Sender: FDA-Public Use
  Company Number: 2007RL000055

PATIENT
  Age: 50 Year
  Sex: Female

DRUGS (8)
  1. OMACOR [Suspect]
     Indication: BLOOD TRIGLYCERIDES INCREASED
     Dosage: 2 GM;QD;PO
     Route: 048
     Dates: start: 20070101
  2. TOPROL-XL [Concomitant]
  3. LOTREL [Concomitant]
  4. TRICOR [Concomitant]
  5. ADVICOR [Concomitant]
  6. PROTIZINE [Concomitant]
  7. REGLAN [Concomitant]
  8. NEXIUM [Concomitant]

REACTIONS (2)
  - ABNORMAL FAECES [None]
  - DIARRHOEA [None]
